FAERS Safety Report 16797466 (Version 1)
Quarter: 2019Q3

REPORT INFORMATION
  Report Type: Report from Study
  Country: IT (occurrence: IT)
  Receive Date: 20190912
  Receipt Date: 20190912
  Transmission Date: 20191005
  Serious: Yes (Hospitalization)
  Sender: FDA-Public Use
  Company Number: IT-TEVA-2019-IT-1104846

PATIENT
  Age: 85 Year
  Sex: Male

DRUGS (6)
  1. ARIXTRA 7.5 MG/0.6?ML SOLUTION FOR INJECTION, PRE-FILLED SYRINGE [Concomitant]
  2. QUETIAPINE. [Suspect]
     Active Substance: QUETIAPINE
     Indication: MENTAL DISORDER
     Dosage: 100 MILLIGRAM PER DAY
     Route: 048
     Dates: start: 20190517, end: 20190530
  3. FERLIXIT 62.5 [Concomitant]
     Active Substance: SODIUM FERRIC GLUCONATE COMPLEX
  4. FOLINA 5 MG CAPSULE MOLLI [Concomitant]
  5. CARDICOR 1,25 MG COMPRESSE RIVESTITE CON FILM [Concomitant]
     Active Substance: BISOPROLOL FUMARATE
  6. LAEVOLAC 180 ML SCIROPPO [Concomitant]

REACTIONS (2)
  - Somnolence [Recovering/Resolving]
  - Sedation complication [Recovering/Resolving]

NARRATIVE: CASE EVENT DATE: 20190530
